FAERS Safety Report 16051243 (Version 1)
Quarter: 2019Q1

REPORT INFORMATION
  Report Type: Spontaneous
  Country: US (occurrence: US)
  Receive Date: 20190208
  Receipt Date: 20190208
  Transmission Date: 20190418
  Serious: Yes (Hospitalization)
  Sender: FDA-Public Use
  Company Number: None

PATIENT
  Age: 59 Year
  Sex: Female

DRUGS (12)
  1. CEHALEXIN [Concomitant]
  2. HYDROXYCLOR [Concomitant]
  3. ONDANSETRON [Concomitant]
     Active Substance: ONDANSETRON
  4. HUMIRA [Suspect]
     Active Substance: ADALIMUMAB
     Indication: RHEUMATOID ARTHRITIS
     Route: 058
     Dates: start: 201802
  5. OXYBUTYNIN. [Concomitant]
     Active Substance: OXYBUTYNIN CHLORIDE
  6. LYRICA [Concomitant]
     Active Substance: PREGABALIN
  7. FOLIC ACID. [Concomitant]
     Active Substance: FOLIC ACID
  8. GABAPENTIN. [Concomitant]
     Active Substance: GABAPENTIN
  9. SUBRALFATE [Concomitant]
  10. OXYCODONE [Concomitant]
     Active Substance: OXYCODONE
  11. NORTRIPTYLIN [Concomitant]
     Active Substance: NORTRIPTYLINE
  12. VENTOLIN HFA [Concomitant]
     Active Substance: ALBUTEROL SULFATE

REACTIONS (1)
  - Influenza [None]

NARRATIVE: CASE EVENT DATE: 201901
